FAERS Safety Report 25764272 (Version 1)
Quarter: 2025Q3

REPORT INFORMATION
  Report Type: Spontaneous
  Country: US (occurrence: US)
  Receive Date: 20250905
  Receipt Date: 20250905
  Transmission Date: 20251021
  Serious: No
  Sender: DOMPE FARMACEUTICI
  Company Number: US-FARMAPROD-202412-4283

PATIENT
  Sex: Male

DRUGS (9)
  1. OXERVATE [Suspect]
     Active Substance: CENEGERMIN-BKBJ
     Indication: Neurotrophic keratopathy
     Route: 047
     Dates: start: 20241109
  2. METOPROLOL SUCCINATE [Concomitant]
     Active Substance: METOPROLOL SUCCINATE
  3. METFORMIN HYDROCHLORIDE [Concomitant]
     Active Substance: METFORMIN HYDROCHLORIDE
  4. COLCHICINE [Concomitant]
     Active Substance: COLCHICINE
  5. MELOXICAM [Concomitant]
     Active Substance: MELOXICAM
  6. AMLODIPINE BESYLATE [Concomitant]
     Active Substance: AMLODIPINE BESYLATE
  7. FENOFIBRATE [Concomitant]
     Active Substance: FENOFIBRATE
  8. ALLOPURINOL [Concomitant]
     Active Substance: ALLOPURINOL
  9. PRED FORTE [Concomitant]
     Active Substance: PREDNISOLONE ACETATE

REACTIONS (2)
  - Therapy interrupted [Unknown]
  - Corneal lesion [Unknown]
